FAERS Safety Report 24081072 (Version 14)
Quarter: 2025Q3

REPORT INFORMATION
  Report Type: Spontaneous
  Country: JP (occurrence: JP)
  Receive Date: 20240711
  Receipt Date: 20250905
  Transmission Date: 20251021
  Serious: Yes (Hospitalization, Other)
  Sender: APELLIS PHARMACEUTICALS
  Company Number: JP-BIOVITRUM-2023-JP-018058

PATIENT

DRUGS (2)
  1. EMPAVELI [Suspect]
     Active Substance: PEGCETACOPLAN
     Indication: Paroxysmal nocturnal haemoglobinuria
     Dosage: 1080 MG, TWICE/WEEK
     Route: 058
     Dates: start: 20231026
  2. WARFARIN [Suspect]
     Active Substance: WARFARIN
     Indication: Product used for unknown indication

REACTIONS (19)
  - Haemoglobin decreased [Recovering/Resolving]
  - Haemolysis [Recovered/Resolved with Sequelae]
  - Injection site haemorrhage [Not Recovered/Not Resolved]
  - Dizziness [Recovered/Resolved]
  - Nausea [Recovered/Resolved]
  - Headache [Recovered/Resolved]
  - Herpes zoster [Not Recovered/Not Resolved]
  - COVID-19 [Unknown]
  - Wrong technique in product usage process [Recovered/Resolved]
  - Injection site pain [Recovered/Resolved]
  - Haematemesis [Unknown]
  - Cholelithiasis [Recovered/Resolved]
  - Cholangitis [Unknown]
  - Anaemia [Unknown]
  - Dysphonia [Unknown]
  - Pyrexia [Not Recovered/Not Resolved]
  - Haematoma infection [Not Recovered/Not Resolved]
  - Hyperthermia [Unknown]
  - Abscess [Not Recovered/Not Resolved]

NARRATIVE: CASE EVENT DATE: 20231106
